FAERS Safety Report 4263209-6 (Version None)
Quarter: 2004Q1

REPORT INFORMATION
  Report Type: 
  Country: None (occurrence: None)
  Receive Date: 20040105
  Receipt Date: 20030701
  Transmission Date: 20041129
  Serious: Yes (Hospitalization)
  Sender: FDA-Public Use
  Company Number: FR-BRISTOL-MYERS SQUIBB COMPANY-12314241

PATIENT
  Age: 45 Year
  Sex: Female

DRUGS (3)
  1. ARIPIPRAZOLE [Suspect]
     Indication: SCHIZOPHRENIA
     Route: 048
     Dates: start: 20030426, end: 20030509
  2. PAROXETINE [Concomitant]
     Dates: start: 20020808, end: 20030502
  3. ZOPICLONE [Concomitant]
     Dates: start: 20020808

REACTIONS (3)
  - DELIRIUM [None]
  - DELUSION [None]
  - MANIA [None]
